FAERS Safety Report 4912799-6 (Version None)
Quarter: 2006Q1

REPORT INFORMATION
  Report Type: 
  Country: None (occurrence: None)
  Receive Date: 20060215
  Receipt Date: 20051109
  Transmission Date: 20060701
  Serious: Yes (Other)
  Sender: FDA-Public Use
  Company Number: US-ROCHE-424419

PATIENT

DRUGS (1)
  1. ACCUTANE [Suspect]
     Dates: start: 19861105, end: 19870331

REACTIONS (5)
  - CAESAREAN SECTION [None]
  - DRUG EXPOSURE BEFORE PREGNANCY [None]
  - FEMALE STERILISATION [None]
  - LABOUR ONSET DELAYED [None]
  - PREGNANCY [None]
